FAERS Safety Report 25930398 (Version 1)
Quarter: 2025Q4

REPORT INFORMATION
  Report Type: Spontaneous
  Country: US (occurrence: None)
  Receive Date: 20251016
  Receipt Date: 20251016
  Transmission Date: 20260118
  Serious: Yes (Hospitalization)
  Sender: FDA-CTU
  Company Number: None

PATIENT
  Age: 70 Year
  Sex: Male

DRUGS (11)
  1. PRALUENT [Suspect]
     Active Substance: ALIROCUMAB
     Indication: Hypercholesterolaemia
     Dosage: 75 MG/ML EVERY 14 DAYS SUBCUTANEOUS?
     Route: 058
     Dates: start: 20250715
  2. IMODIUM A-D 2MG TABLETS [Concomitant]
  3. CASEIN\DIETARY SUPPLEMENT\THEANINE [Concomitant]
     Active Substance: CASEIN\DIETARY SUPPLEMENT\THEANINE
  4. ASPIRIN 81MG EC LOW DOSE TABLETS [Concomitant]
  5. TORSEMIDE [Concomitant]
     Active Substance: TORSEMIDE
  6. EZETIMIBE [Concomitant]
     Active Substance: EZETIMIBE
  7. metoprolol er 25mg [Concomitant]
  8. nitroglycerin 0.4mg [Concomitant]
  9. ONDANSETRON [Concomitant]
     Active Substance: ONDANSETRON
  10. MECLIZINE 25MG [Concomitant]
     Active Substance: MECLIZINE HYDROCHLORIDE
  11. CITALOPRAM [Concomitant]
     Active Substance: CITALOPRAM

REACTIONS (1)
  - Chest discomfort [None]

NARRATIVE: CASE EVENT DATE: 20251010
